FAERS Safety Report 14112171 (Version 1)
Quarter: 2017Q4

REPORT INFORMATION
  Report Type: Spontaneous
  Country: US (occurrence: US)
  Receive Date: 20171020
  Receipt Date: 20171020
  Transmission Date: 20180321
  Serious: Yes (Hospitalization)
  Sender: FDA-Public Use
  Company Number: US-TEVA-817608USA

PATIENT
  Age: 12 Hour
  Sex: Female

DRUGS (6)
  1. NITROFURANTOIN. [Concomitant]
     Active Substance: NITROFURANTOIN
     Route: 064
  2. BACLOFEN. [Suspect]
     Active Substance: BACLOFEN
     Route: 064
  3. TIZANIDINE. [Concomitant]
     Active Substance: TIZANIDINE
     Route: 064
  4. GABAPENTIN. [Concomitant]
     Active Substance: GABAPENTIN
     Route: 064
  5. HEPARIN [Concomitant]
     Active Substance: HEPARIN SODIUM
     Dosage: LOW MOLECULAR WEIGHT HEPARIN
     Route: 064
  6. TRAZODONE [Concomitant]
     Active Substance: TRAZODONE HYDROCHLORIDE
     Route: 064

REACTIONS (9)
  - Hypertonia [Recovered/Resolved]
  - Sneezing [Recovered/Resolved]
  - Foetal exposure during pregnancy [Recovered/Resolved]
  - Tremor neonatal [Recovered/Resolved]
  - Diarrhoea [Recovered/Resolved]
  - Drug withdrawal syndrome neonatal [Recovered/Resolved]
  - Reflexes abnormal [Recovered/Resolved]
  - Poor sucking reflex [Recovered/Resolved]
  - Faeces discoloured [Recovered/Resolved]
